FAERS Safety Report 17143299 (Version 1)
Quarter: 2019Q4

REPORT INFORMATION
  Report Type: Report from Study
  Country: DE (occurrence: DE)
  Receive Date: 20191211
  Receipt Date: 20191211
  Transmission Date: 20200122
  Serious: Yes (Other)
  Sender: FDA-Public Use
  Company Number: DE-AMERICAN REGENT INC-20190149

PATIENT
  Age: 51 Year
  Sex: Female

DRUGS (6)
  1. FERINJECT [Suspect]
     Active Substance: FERRIC CARBOXYMALTOSE
     Indication: ANAEMIA
     Dosage: UNKNOWN 1 DAYS
     Route: 051
     Dates: start: 20171122, end: 20171122
  2. PENICILLIN NOS [Suspect]
     Active Substance: PENICILLIN
     Indication: BRONCHITIS
     Dosage: UNKNOWN 12 DAYS
     Route: 065
     Dates: start: 20181101, end: 20181112
  3. COLESTYRAMINE [Concomitant]
     Active Substance: CHOLESTYRAMINE
     Indication: DIARRHOEA
     Dosage: AS REQUIRED
     Route: 048
     Dates: start: 20150213
  4. VENOFER [Suspect]
     Active Substance: IRON SUCROSE
     Indication: BLOOD IRON DECREASED
     Dosage: UNKNOWN
     Route: 065
  5. PANTOZOL [Concomitant]
     Active Substance: PANTOPRAZOLE SODIUM
     Indication: ABDOMINAL PAIN UPPER
     Dosage: AS REQUIRED
     Route: 048
     Dates: start: 20170914
  6. HUMIRA [Suspect]
     Active Substance: ADALIMUMAB
     Indication: CROHN^S DISEASE
     Dosage: 40 MG/0.4 ML (40 MG,1 IN 14 D)
     Route: 058
     Dates: start: 201608

REACTIONS (13)
  - Pruritus [Recovered/Resolved]
  - Gait disturbance [Recovered/Resolved]
  - Bronchitis [Recovering/Resolving]
  - Feeling hot [Not Recovered/Not Resolved]
  - Drug intolerance [Recovered/Resolved]
  - Rash macular [Unknown]
  - Pain [Not Recovered/Not Resolved]
  - Blood iron decreased [Unknown]
  - Erythema [Not Recovered/Not Resolved]
  - Rash [Recovering/Resolving]
  - Neck pain [Unknown]
  - Systemic lupus erythematosus [Recovering/Resolving]
  - Swelling [Not Recovered/Not Resolved]

NARRATIVE: CASE EVENT DATE: 201711
